FAERS Safety Report 9223282 (Version 1)
Quarter: 2013Q2

REPORT INFORMATION
  Report Type: Spontaneous
  Country: BR (occurrence: BR)
  Receive Date: 20130410
  Receipt Date: 20130410
  Transmission Date: 20140414
  Serious: Yes (Other)
  Sender: FDA-Public Use
  Company Number: BR-PFIZER INC-2013108322

PATIENT
  Age: 60 Year
  Sex: Female
  Weight: 57 kg

DRUGS (9)
  1. FRONTAL [Suspect]
     Indication: ANXIETY
     Dosage: 1 TABLET, 1X/DAY
     Route: 048
     Dates: start: 2010
  2. FRONTAL [Suspect]
     Dosage: 0.5 DF, 1X/DAY
     Route: 048
  3. FRONTAL [Suspect]
     Dosage: 0.25 DF, 1X/DAY
     Route: 048
  4. EFEXOR XR [Suspect]
     Indication: GENERALISED ANXIETY DISORDER
     Dosage: 75 MG, 1X/DAY
     Route: 048
     Dates: start: 20130208
  5. EFEXOR XR [Suspect]
     Dosage: 75 MG, 2X/DAY
     Route: 048
     Dates: start: 20130219, end: 20130219
  6. EFEXOR XR [Suspect]
     Dosage: 75 MG, 1X/DAY
     Route: 048
     Dates: start: 20130220
  7. CLO [Suspect]
     Dosage: 1 UNSPECIFIED IF CAPSULE OR TABLET, 1X/DAY
     Route: 048
  8. RIVOTRIL [Suspect]
     Indication: DEPRESSION
     Dosage: UNK
     Route: 048
  9. VENLIFT [Suspect]
     Dosage: 1 DF, 1X/DAY (AT NIGHT)
     Route: 048

REACTIONS (23)
  - Eye haemorrhage [Recovering/Resolving]
  - Spinal pain [Unknown]
  - Depression [Unknown]
  - Lactose intolerance [Unknown]
  - Liver disorder [Recovering/Resolving]
  - Feeling abnormal [Recovering/Resolving]
  - Nausea [Recovering/Resolving]
  - Decreased appetite [Unknown]
  - Abdominal pain [Unknown]
  - Headache [Recovering/Resolving]
  - Weight increased [Unknown]
  - Abdominal distension [Unknown]
  - Anxiety [Unknown]
  - Tremor [Unknown]
  - Palpitations [Unknown]
  - Tachycardia [Unknown]
  - Chills [Recovering/Resolving]
  - Asthenia [Recovering/Resolving]
  - Dry mouth [Recovering/Resolving]
  - Tongue discolouration [Recovering/Resolving]
  - Dysgeusia [Recovering/Resolving]
  - Insomnia [Unknown]
  - Restlessness [Unknown]
